FAERS Safety Report 21341408 (Version 2)
Quarter: 2022Q3

REPORT INFORMATION
  Report Type: Report from Study
  Country: BR (occurrence: BR)
  Receive Date: 20220916
  Receipt Date: 20220926
  Transmission Date: 20221027
  Serious: Yes (Other)
  Sender: FDA-Public Use
  Company Number: BR-JNJFOC-20220909764

PATIENT
  Age: 16 Year
  Sex: Male

DRUGS (2)
  1. INFLIXIMAB [Suspect]
     Active Substance: INFLIXIMAB
     Indication: Crohn^s disease
     Dosage: 3 VIAL
     Route: 041
     Dates: start: 20210126
  2. REMICADE [Suspect]
     Active Substance: INFLIXIMAB
     Indication: Crohn^s disease
     Route: 041
     Dates: start: 20201021

REACTIONS (4)
  - Crohn^s disease [Unknown]
  - Surgery [Unknown]
  - Intercepted product prescribing error [Unknown]
  - Off label use [Unknown]
